FAERS Safety Report 25174870 (Version 1)
Quarter: 2025Q2

REPORT INFORMATION
  Report Type: Spontaneous
  Country: FR (occurrence: FR)
  Receive Date: 20250408
  Receipt Date: 20250408
  Transmission Date: 20250717
  Serious: Yes (Other)
  Sender: AMGEN
  Company Number: FR-AMGEN-FRASP2025064762

PATIENT

DRUGS (2)
  1. USTEKINUMAB [Suspect]
     Active Substance: USTEKINUMAB
     Indication: Spondyloarthropathy
     Route: 065
  2. UPADACITINIB [Concomitant]
     Active Substance: UPADACITINIB

REACTIONS (1)
  - Spondyloarthropathy [Unknown]
